FAERS Safety Report 8928066 (Version 2)
Quarter: 2013Q1

REPORT INFORMATION
  Report Type: Spontaneous
  Country: BR (occurrence: None)
  Receive Date: 20121120
  Receipt Date: 20121214
  Transmission Date: 20140127
  Serious: Yes (Other)
  Sender: FDA-Public Use
  Company Number: ENTC2012-0513

PATIENT
  Age: 67 Year
  Sex: Male

DRUGS (1)
  1. STALEVO [Suspect]
     Indication: PARKINSON^S DISEASE
     Dosage: 3 TABLETS DAILY
     Route: 048
     Dates: start: 201209

REACTIONS (6)
  - Treatment noncompliance [None]
  - Inappropriate schedule of drug administration [None]
  - Malnutrition [None]
  - Multi-organ failure [None]
  - Pneumonia [None]
  - Aphagia [None]
